FAERS Safety Report 10677895 (Version 1)
Quarter: 2014Q4

REPORT INFORMATION
  Report Type: Spontaneous
  Country: US (occurrence: None)
  Receive Date: 20141223
  Receipt Date: 20141223
  Transmission Date: 20150529
  Serious: Yes (Death)
  Sender: FDA-Public Use
  Company Number: INT_00551_2014

PATIENT

DRUGS (6)
  1. DEXAMETHASONE. [Concomitant]
     Active Substance: DEXAMETHASONE
  2. CISPLATIN. [Suspect]
     Active Substance: CISPLATIN
     Indication: NON-SMALL CELL LUNG CANCER STAGE III
     Dosage: 75 MG/M2, [DAY 1, EVERY 3 WEEKS FOR 3 CYCLES] INTRAVENOUS (NOT OTHERWISE SPECIFIED)?
     Route: 042
  3. RADIATION THERAPY [Concomitant]
     Active Substance: RADIATION THERAPY
  4. PEMETREXED [Suspect]
     Active Substance: PEMETREXED
     Indication: NON-SMALL CELL LUNG CANCER STAGE III
     Dosage: 500 MG/M2, [DAY 1, EVERY 3 WEEKS FOR 3 CYCLES] INTRAVEOUS (NOT OTHERWISE SPECIFIED)
     Route: 042
  5. FOLIC ACID. [Concomitant]
     Active Substance: FOLIC ACID
  6. VITAMIN B12 [Concomitant]
     Active Substance: CYANOCOBALAMIN

REACTIONS (1)
  - Myocardial infarction [None]
